FAERS Safety Report 7269998-0 (Version None)
Quarter: 2011Q1

REPORT INFORMATION
  Report Type: 
  Country: None (occurrence: None)
  Receive Date: 20110124
  Receipt Date: 20110124
  Transmission Date: 20110831
  Serious: Yes (Other)
  Sender: FDA-Public Use
  Company Number: None

PATIENT
  Age: 50 Year
  Sex: Male
  Weight: 104.3273 kg

DRUGS (1)
  1. SIMPLE Y SALINE NONE CHURCH+ DWIGHT [Suspect]
     Indication: NASAL CONGESTION
     Dates: start: 20110117, end: 20110119

REACTIONS (3)
  - APPLICATION SITE PAIN [None]
  - PRODUCT QUALITY ISSUE [None]
  - APPLICATION SITE BLEEDING [None]
